FAERS Safety Report 9825728 (Version 1)
Quarter: 2013Q4

REPORT INFORMATION
  Report Type: Spontaneous
  Country: US (occurrence: None)
  Receive Date: 20131028
  Receipt Date: 20131028
  Transmission Date: 20140711
  Serious: Yes (Other)
  Sender: FDA-Public Use
  Company Number: 2013US002309

PATIENT
  Age: 33 Year
  Sex: Male
  Weight: 81 kg

DRUGS (5)
  1. ICLUSIG [Suspect]
     Indication: CHRONIC MYELOID LEUKAEMIA
     Dosage: 45 MG, QD, ORAL
     Route: 048
     Dates: start: 20130108
  2. WARFARIN (WARFARIN) [Concomitant]
  3. VITAMIN C (VITAMIN C) [Concomitant]
  4. HYDROCORTISONE (HYDROCORTISONE) [Concomitant]
  5. VICODIN (HYDROCODONE BIARTRATE, PARACETAMOL) [Concomitant]

REACTIONS (9)
  - Eye pain [None]
  - Fungal skin infection [None]
  - Vision blurred [None]
  - Thrombocytopenia [None]
  - Bone pain [None]
  - Fatigue [None]
  - Insomnia [None]
  - Rash erythematous [None]
  - Weight decreased [None]
